FAERS Safety Report 9189413 (Version 7)
Quarter: 2013Q3

REPORT INFORMATION
  Report Type: Spontaneous
  Country: US (occurrence: US)
  Receive Date: 20130326
  Receipt Date: 20130822
  Transmission Date: 20140515
  Serious: Yes (Other)
  Sender: FDA-Public Use
  Company Number: PHEH2011US013308

PATIENT
  Age: 89 Year
  Sex: Male

DRUGS (16)
  1. AREDIA [Suspect]
     Indication: PLASMA CELL MYELOMA
     Route: 042
  2. ZOMETA [Suspect]
     Indication: PLASMA CELL MYELOMA
     Dosage: 3 MG,
     Route: 042
     Dates: end: 2009
  3. ZOMETA [Suspect]
     Indication: HYPERCALCAEMIA
  4. ASPIRIN [Concomitant]
  5. CILOSTAZOL [Concomitant]
  6. OXYCODONE [Concomitant]
  7. POLYETHYLENE GLYCOL [Concomitant]
  8. SENNOSIDE [Concomitant]
  9. TAMSULOSIN [Concomitant]
  10. TIMOLOL [Concomitant]
  11. TRAVOPROST [Concomitant]
  12. PENICILLIN [Concomitant]
  13. CHLORHEXIDINE [Concomitant]
  14. OXYCONTIN [Concomitant]
  15. VELCADE [Concomitant]
  16. AMOX [Concomitant]

REACTIONS (173)
  - Osteonecrosis of jaw [Unknown]
  - Pain [Unknown]
  - Infection [Unknown]
  - Deformity [Unknown]
  - Exposed bone in jaw [Unknown]
  - Purulence [Unknown]
  - Eating disorder [Unknown]
  - Excessive granulation tissue [Unknown]
  - Tooth discolouration [Unknown]
  - Anxiety [Unknown]
  - Injury [Unknown]
  - Disability [Unknown]
  - Coronary artery disease [Unknown]
  - Glaucoma [Unknown]
  - Peripheral vascular disorder [Unknown]
  - Metastases to spine [Unknown]
  - Sinus perforation [Unknown]
  - Intermittent claudication [Unknown]
  - Benign prostatic hyperplasia [Unknown]
  - Fistula [Unknown]
  - Arthritis [Unknown]
  - Eye infection [Unknown]
  - Rectal polyp [Unknown]
  - Gastric ulcer [Unknown]
  - Gastritis [Unknown]
  - Metaplasia [Unknown]
  - Depression [Unknown]
  - Cellulitis [Unknown]
  - Basal cell carcinoma [Unknown]
  - Second primary malignancy [Unknown]
  - Inflammation [Unknown]
  - Facet joint syndrome [Unknown]
  - Intervertebral disc protrusion [Unknown]
  - Spinal compression fracture [Unknown]
  - Kyphosis [Unknown]
  - Spinal column stenosis [Unknown]
  - Impaired healing [Not Recovered/Not Resolved]
  - Gingival erythema [Unknown]
  - Pain in jaw [Unknown]
  - Myocardial infarction [Unknown]
  - Eye pain [Unknown]
  - Spondylolisthesis [Unknown]
  - Tachycardia [Unknown]
  - Osteoporosis [Unknown]
  - Abscess jaw [Unknown]
  - Abscess neck [Unknown]
  - Bone loss [Unknown]
  - Loose tooth [Unknown]
  - Toothache [Unknown]
  - Neoplasm prostate [Unknown]
  - Gingival discolouration [Unknown]
  - Renal failure acute [Unknown]
  - Pathological fracture [Unknown]
  - Bone erosion [Unknown]
  - Facial pain [Unknown]
  - Hypoaesthesia oral [Unknown]
  - Fall [Unknown]
  - Skin injury [Unknown]
  - Ankle fracture [Unknown]
  - Discomfort [Unknown]
  - Rib fracture [Unknown]
  - Atelectasis [Unknown]
  - Pneumothorax [Unknown]
  - Diverticulum [Unknown]
  - Vascular calcification [Unknown]
  - Lumbar vertebral fracture [Unknown]
  - Renal injury [Unknown]
  - Carotid artery stenosis [Unknown]
  - Pneumonia [Unknown]
  - Pleural effusion [Unknown]
  - Hiatus hernia [Unknown]
  - Obstructive uropathy [Unknown]
  - Scoliosis [Unknown]
  - Skin cancer [Unknown]
  - Blepharitis [Unknown]
  - Age-related macular degeneration [Unknown]
  - Hyperlipidaemia [Unknown]
  - Cerebrovascular disorder [Unknown]
  - Chronic obstructive pulmonary disease [Unknown]
  - Circulatory collapse [Unknown]
  - Arteriosclerosis [Unknown]
  - Haemothorax [Unknown]
  - Anaemia [Unknown]
  - Spinal osteoarthritis [Unknown]
  - Intervertebral disc degeneration [Unknown]
  - Arthropathy [Unknown]
  - Productive cough [Unknown]
  - Osteolysis [Unknown]
  - Nephrolithiasis [Unknown]
  - Bone fragmentation [Unknown]
  - Osteitis [Unknown]
  - Osteonecrosis [Unknown]
  - Fracture [Unknown]
  - Ligament sprain [Unknown]
  - Joint swelling [Unknown]
  - Peripheral arterial occlusive disease [Unknown]
  - Osteoarthritis [Unknown]
  - Ecchymosis [Unknown]
  - Osteomyelitis [Unknown]
  - Left atrial dilatation [Unknown]
  - Cardiac arrest [Unknown]
  - Iliac artery occlusion [Unknown]
  - Arterial insufficiency [Unknown]
  - Skin ulcer [Unknown]
  - Localised infection [Unknown]
  - Large intestine polyp [Unknown]
  - Peptic ulcer [Unknown]
  - Chemical burn of skin [Recovered/Resolved]
  - Chemical burns of eye [Recovered/Resolved]
  - Actinic keratosis [Unknown]
  - Onychomycosis [Recovering/Resolving]
  - Herpes zoster [Unknown]
  - Pulmonary congestion [Unknown]
  - Emphysema [Unknown]
  - Tooth abscess [Unknown]
  - Myositis [Unknown]
  - Cardiomyopathy [Unknown]
  - Necrosis ischaemic [Unknown]
  - Squamous cell carcinoma [Unknown]
  - Polyp [Unknown]
  - Spinal cord compression [Unknown]
  - Xerosis [Unknown]
  - Escherichia infection [Unknown]
  - Urosepsis [Unknown]
  - Punctate keratitis [Unknown]
  - Optic nerve injury [Unknown]
  - Blindness [Unknown]
  - Eyelid ptosis [Unknown]
  - Macular fibrosis [Unknown]
  - Iritis [Recovered/Resolved]
  - Tooth fracture [Unknown]
  - Vertebral foraminal stenosis [Unknown]
  - Kyphoscoliosis [Unknown]
  - Sepsis [Unknown]
  - Urinary tract infection [Unknown]
  - Seborrhoeic keratosis [Unknown]
  - Intervertebral disc space narrowing [Unknown]
  - Head injury [Unknown]
  - Mastication disorder [Unknown]
  - Arrhythmia [Unknown]
  - Epistaxis [Unknown]
  - Oroantral fistula [Unknown]
  - Dental caries [Unknown]
  - Renal failure chronic [Unknown]
  - Dysphagia [Unknown]
  - Arteriosclerosis coronary artery [Unknown]
  - Deep vein thrombosis [Unknown]
  - Vertebral osteophyte [Unknown]
  - Bladder dilatation [Unknown]
  - Cardiac failure congestive [Unknown]
  - Hypertension [Unknown]
  - Hypoacusis [Unknown]
  - Faecal incontinence [Unknown]
  - Urinary incontinence [Unknown]
  - Back pain [Unknown]
  - Gait disturbance [Unknown]
  - Abdominal pain upper [Unknown]
  - Skin exfoliation [Unknown]
  - Hyperkeratosis [Unknown]
  - Vision blurred [Unknown]
  - Fatigue [Unknown]
  - Musculoskeletal chest pain [Unknown]
  - Abdominal pain [Unknown]
  - Thrombocytopenia [Unknown]
  - Hypotension [Unknown]
  - Nausea [Unknown]
  - Gastrooesophageal reflux disease [Unknown]
  - Pigmentation disorder [Unknown]
  - Pallor [Unknown]
  - Sinus headache [Unknown]
  - Xanthelasma [Unknown]
  - Vitreous floaters [Unknown]
  - Flank pain [Unknown]
